FAERS Safety Report 21965200 (Version 1)
Quarter: 2023Q1

REPORT INFORMATION
  Report Type: Spontaneous
  Country: US (occurrence: US)
  Receive Date: 20230208
  Receipt Date: 20230208
  Transmission Date: 20230417
  Serious: Yes (Death, Other)
  Sender: FDA-Public Use
  Company Number: US-AMNEAL PHARMACEUTICALS-2023-AMRX-00393

PATIENT
  Sex: Male

DRUGS (2)
  1. RYTARY [Suspect]
     Active Substance: CARBIDOPA\LEVODOPA
     Indication: Parkinson^s disease
     Dosage: 4 CAPSULES AT 6AM, 11:30AM, AND 5PM AND TAKE 3 CAPSULES AT 10PM
     Route: 048
  2. RYTARY [Suspect]
     Active Substance: CARBIDOPA\LEVODOPA
     Dosage: 3 CAPSULES, QID (6AM,11:30AM, 5PM, AND 10PM)
     Route: 048
     Dates: start: 20220811

REACTIONS (2)
  - Parkinson^s disease [Fatal]
  - Dysphagia [Unknown]
